FAERS Safety Report 10464587 (Version 2)
Quarter: 2014Q3

REPORT INFORMATION
  Report Type: Report from Study
  Country: MX (occurrence: MX)
  Receive Date: 20140919
  Receipt Date: 20140919
  Transmission Date: 20150326
  Serious: Yes (Hospitalization)
  Sender: FDA-Public Use
  Company Number: MX-BAYER-2013-143161

PATIENT
  Sex: Female
  Weight: 52 kg

DRUGS (4)
  1. REGORAFENIB [Suspect]
     Active Substance: REGORAFENIB
     Indication: COLORECTAL CANCER METASTATIC
     Dosage: 160 MG, QD
     Route: 048
     Dates: start: 20131026, end: 20131115
  2. MESTREL [Concomitant]
     Indication: DECREASED APPETITE
     Dosage: 160 MG, QD
     Route: 048
     Dates: start: 20131112, end: 20131115
  3. MELOX [Concomitant]
     Active Substance: MELOXICAM
     Indication: MUCOSAL INFLAMMATION
     Dosage: 5 ML, QD
     Route: 048
     Dates: start: 20131112, end: 20131115
  4. OMEPRAZOL [Concomitant]
     Active Substance: OMEPRAZOLE
     Indication: GASTRITIS
     Dosage: 20 MG, UNK
     Route: 048
     Dates: start: 20130906, end: 20131115

REACTIONS (1)
  - Gastritis [Recovered/Resolved]

NARRATIVE: CASE EVENT DATE: 20131116
